FAERS Safety Report 6767721-7 (Version None)
Quarter: 2010Q2

REPORT INFORMATION
  Report Type: 
  Country: None (occurrence: None)
  Receive Date: 20100610
  Receipt Date: 20100505
  Transmission Date: 20101027
  Serious: Yes (Hospitalization)
  Sender: FDA-Public Use
  Company Number: 8052879

PATIENT
  Sex: Male

DRUGS (4)
  1. XYZALL /01530201/ (XYZALL) [Suspect]
  2. ZYRTEC [Concomitant]
  3. PHENERGAN HCL [Concomitant]
  4. MEDROL [Concomitant]

REACTIONS (3)
  - PRURITUS [None]
  - SWELLING [None]
  - URTICARIA [None]
